FAERS Safety Report 9219409 (Version 1)
Quarter: 2013Q1

REPORT INFORMATION
  Report Type: Spontaneous
  Country: US (occurrence: None)
  Receive Date: 20120830
  Receipt Date: 20120830
  Transmission Date: 20140127
  Serious: Yes (Hospitalization)
  Sender: FDA-Public Use
  Company Number: PHEH2012US003283

PATIENT
  Age: 74 Year
  Sex: Male

DRUGS (12)
  1. EXFORGE [Suspect]
     Dosage: 1  DF (320/5 MG), PER DAY)
  2. CLONIDINE (CLONIDINE) [Concomitant]
  3. WARFARIN (WARFARIN) [Concomitant]
  4. LISINOPRIL (LISINOPRIL) [Concomitant]
  5. POTASSIUM (POTASSIUM) [Concomitant]
  6. ATENOLOL (ATENOLOL) [Concomitant]
  7. LIPITOR/NET/(ATORVASTATIN CALCIUM) [Concomitant]
  8. AMLODIPINE (AMLODIPINE) [Concomitant]
  9. NAPROXEN SODIUM (NAPROXEN SODIUM) [Concomitant]
  10. GARLIC (ALLIUM SATIVUM) [Concomitant]
  11. OSTEO BI-FLEX (CHONDROITIN SULFATE, GLUCOSAMINE HYDROCHLORIDE) [Concomitant]
  12. ESTER-C (CALCIUM ASCORBATE) [Concomitant]

REACTIONS (4)
  - Chest pain [None]
  - Hypotension [None]
  - Hypertension [None]
  - Drug ineffective [None]
